FAERS Safety Report 17294848 (Version 1)
Quarter: 2020Q1

REPORT INFORMATION
  Report Type: Spontaneous
  Country: US (occurrence: US)
  Receive Date: 20200121
  Receipt Date: 20200121
  Transmission Date: 20200409
  Serious: No
  Sender: FDA-Public Use
  Company Number: US-MYLANLABS-2020M1001979

PATIENT
  Sex: Male
  Weight: 77 kg

DRUGS (4)
  1. AMOXICILLIN AUROBINDO [Interacting]
     Active Substance: AMOXICILLIN
     Indication: EAR INFECTION
     Dosage: TAKING 2 TABLETS DAILY FOR 7 DAYS
     Dates: start: 20191226, end: 20200103
  2. PREDNISONE TABLETS USP [Interacting]
     Active Substance: PREDNISONE
     Indication: EAR INFECTION
     Dosage: TAPERED DOSING FROM 50MG FOR 5 DAYS, DECREASING BY 10MG DAILY TO FINAL 10MG DOSE ON THE 9TH DAY
     Route: 048
     Dates: start: 20191220, end: 20191229
  3. ESOMEPRAZOLE MAGNESIUM D/R [Suspect]
     Active Substance: ESOMEPRAZOLE MAGNESIUM
     Indication: PRODUCT USED FOR UNKNOWN INDICATION
     Dosage: TWICE DAILY BEFORE MEALS
     Route: 048
  4. AZITHROMYCIN ANHYDROUS. [Interacting]
     Active Substance: AZITHROMYCIN ANHYDROUS
     Indication: EAR INFECTION
     Dosage: TWO TABLETS ON THE FIRST DAY FOLLOWED BY 1 TABLET DAILY FOR FOUR DAYS
     Dates: start: 20191219, end: 20191223

REACTIONS (2)
  - Drug interaction [Not Recovered/Not Resolved]
  - Drug ineffective [Recovered/Resolved]
